FAERS Safety Report 14099803 (Version 1)
Quarter: 2017Q4

REPORT INFORMATION
  Report Type: Spontaneous
  Country: LV (occurrence: LV)
  Receive Date: 20171017
  Receipt Date: 20171017
  Transmission Date: 20180321
  Serious: Yes (Other)
  Sender: FDA-Public Use
  Company Number: LV-PFIZER INC-2017442839

PATIENT
  Age: 51 Year
  Sex: Male

DRUGS (3)
  1. SUNITINIB MALATE. [Suspect]
     Active Substance: SUNITINIB MALATE
     Indication: CLEAR CELL RENAL CELL CARCINOMA
     Dosage: 50 MG, 4/2
     Dates: start: 20151103, end: 20170321
  2. AXITINIB [Suspect]
     Active Substance: AXITINIB
     Dosage: 6 MG, 2X/DAY
     Dates: start: 20170725, end: 20170925
  3. AXITINIB [Suspect]
     Active Substance: AXITINIB
     Indication: CLEAR CELL RENAL CELL CARCINOMA
     Dosage: 5 MG, 2X/DAY
     Dates: start: 20170322

REACTIONS (7)
  - Diarrhoea [Unknown]
  - Hypertension [Unknown]
  - Neoplasm progression [Unknown]
  - Dysgeusia [Unknown]
  - Skin discolouration [Unknown]
  - Fatigue [Unknown]
  - Pulmonary fibrosis [Unknown]

NARRATIVE: CASE EVENT DATE: 20160713
